FAERS Safety Report 10965824 (Version 1)
Quarter: 2015Q1

REPORT INFORMATION
  Report Type: Spontaneous
  Country: IT (occurrence: IT)
  Receive Date: 20150330
  Receipt Date: 20150330
  Transmission Date: 20150721
  Serious: Yes (Hospitalization)
  Sender: FDA-Public Use
  Company Number: IT-AUROBINDO-AUR-APL-2015-02659

PATIENT
  Age: 21 Year
  Sex: Female

DRUGS (4)
  1. MIRTAZAPINE TABLET 30MG [Suspect]
     Active Substance: MIRTAZAPINE
     Indication: DRUG ABUSE
     Dosage: 30 MG, UNK
     Route: 048
     Dates: start: 20150223, end: 20150223
  2. ALPRAZOLAM. [Suspect]
     Active Substance: ALPRAZOLAM
     Indication: DRUG ABUSE
     Dosage: 1 MG, UNK
     Route: 048
     Dates: start: 20150223, end: 20150223
  3. TACHIPIRINA [Suspect]
     Active Substance: ACETAMINOPHEN
     Indication: DRUG ABUSE
     Dosage: 500 MG, UNK
     Route: 048
     Dates: start: 20150223, end: 20150223
  4. ZOLOFT [Suspect]
     Active Substance: SERTRALINE HYDROCHLORIDE
     Indication: DRUG ABUSE
     Dosage: 50 MG, UNK
     Route: 048
     Dates: start: 20150223, end: 20150223

REACTIONS (2)
  - Drug abuse [Recovered/Resolved]
  - Sopor [Recovered/Resolved]

NARRATIVE: CASE EVENT DATE: 20150223
